FAERS Safety Report 6178799-6 (Version None)
Quarter: 2009Q2

REPORT INFORMATION
  Report Type: 
  Country: None (occurrence: None)
  Receive Date: 20090504
  Receipt Date: 20090306
  Transmission Date: 20091009
  Serious: No
  Sender: FDA-Public Use
  Company Number: US-ALEXION-A200900193

PATIENT
  Sex: Female

DRUGS (9)
  1. SOLIRIS [Suspect]
     Indication: PAROXYSMAL NOCTURNAL HAEMOGLOBINURIA
     Dosage: 600 MG, QW
     Route: 042
     Dates: start: 20090305, end: 20090326
  2. ARANESP [Concomitant]
     Dosage: UNK
     Dates: start: 20090301, end: 20090301
  3. PREDNISONE [Concomitant]
     Indication: PAROXYSMAL NOCTURNAL HAEMOGLOBINURIA
     Dosage: 10 MG, QD
     Route: 048
  4. FOLIC ACID [Concomitant]
     Indication: PAROXYSMAL NOCTURNAL HAEMOGLOBINURIA
     Dosage: 1 MG, QD
     Route: 048
  5. GLUCOTROL [Concomitant]
     Dosage: UNK
     Route: 048
  6. XANAX [Concomitant]
     Indication: NERVOUSNESS
     Dosage: 0.25 MG, UNK
     Route: 048
  7. LISINOPRIL [Concomitant]
     Indication: BLOOD PRESSURE ABNORMAL
     Dosage: 10 MG, QD
     Route: 048
  8. PRILOSEC [Concomitant]
     Indication: GASTRIC ULCER
     Dosage: 20 MG, QD
     Route: 048
  9. PRILOSEC [Concomitant]
     Indication: GASTROOESOPHAGEAL REFLUX DISEASE

REACTIONS (1)
  - BACK PAIN [None]
